FAERS Safety Report 8480188-6 (Version None)
Quarter: 2012Q2

REPORT INFORMATION
  Report Type: 
  Country: None (occurrence: None)
  Receive Date: 20120629
  Receipt Date: 20120627
  Transmission Date: 20120825
  Serious: Yes (Other)
  Sender: FDA-Public Use
  Company Number: GB-MERCK-1206USA05067

PATIENT
  Age: 70 Year
  Sex: Female
  Weight: 86 kg

DRUGS (7)
  1. ZOCOR [Suspect]
     Route: 048
     Dates: start: 20120305, end: 20120430
  2. RAMIPRIL [Concomitant]
     Route: 065
     Dates: start: 20120305
  3. ATENOLOL [Concomitant]
     Route: 065
     Dates: start: 20120305
  4. LACIDIPINE [Concomitant]
     Route: 065
     Dates: start: 20120305
  5. LEVOTHYROXINE SODIUM [Concomitant]
     Route: 065
     Dates: start: 20120224
  6. FUROSEMIDE [Concomitant]
     Route: 065
     Dates: start: 20120305
  7. ALLOPURINOL [Concomitant]
     Route: 065
     Dates: start: 20120305

REACTIONS (1)
  - ANAEMIA HAEMOLYTIC AUTOIMMUNE [None]
